FAERS Safety Report 6243057-8 (Version None)
Quarter: 2009Q2

REPORT INFORMATION
  Report Type: 
  Country: None (occurrence: None)
  Receive Date: 20090624
  Receipt Date: 20090612
  Transmission Date: 20091009
  Serious: Yes (Other)
  Sender: FDA-Public Use
  Company Number: IE-ELI_LILLY_AND_COMPANY-GB200906003527

PATIENT
  Age: 74 Year
  Sex: Female

DRUGS (2)
  1. ZYPREXA [Suspect]
     Indication: MAJOR DEPRESSION
     Dates: start: 20070101, end: 20090101
  2. HYDROCHLORIC ACID [Concomitant]

REACTIONS (2)
  - EXPOSURE TO TOXIC AGENT [None]
  - OFF LABEL USE [None]
